FAERS Safety Report 16500121 (Version 2)
Quarter: 2019Q3

REPORT INFORMATION
  Report Type: Spontaneous
  Country: BR (occurrence: BR)
  Receive Date: 20190701
  Receipt Date: 20190902
  Transmission Date: 20191004
  Serious: Yes (Other)
  Sender: FDA-Public Use
  Company Number: PHHY2014BR115413

PATIENT
  Age: 51 Year
  Sex: Female
  Weight: 56 kg

DRUGS (4)
  1. TRILEPTAL [Suspect]
     Active Substance: OXCARBAZEPINE
     Indication: ANXIETY
  2. RIVOTRIL [Suspect]
     Active Substance: CLONAZEPAM
     Indication: ANXIETY
     Dosage: 0.5 DF (HALF TABLET), QD
     Route: 048
     Dates: start: 2003
  3. TRILEPTAL [Suspect]
     Active Substance: OXCARBAZEPINE
     Indication: DEPRESSION
     Dosage: 1 DF, QHS
     Route: 048
     Dates: start: 201107
  4. TRILEPTAL [Suspect]
     Active Substance: OXCARBAZEPINE
     Indication: PANIC DISORDER
     Dosage: 1 DF, QHS
     Route: 048

REACTIONS (25)
  - Abdominal discomfort [Not Recovered/Not Resolved]
  - Somnolence [Not Recovered/Not Resolved]
  - Tremor [Not Recovered/Not Resolved]
  - Insomnia [Not Recovered/Not Resolved]
  - Feeling drunk [Unknown]
  - Mental disorder [Recovering/Resolving]
  - Balance disorder [Recovering/Resolving]
  - Hypotension [Unknown]
  - Drug ineffective [Unknown]
  - Malaise [Unknown]
  - Abdominal pain upper [Recovering/Resolving]
  - Hemiplegia [Unknown]
  - Diarrhoea [Recovering/Resolving]
  - Nausea [Unknown]
  - Head discomfort [Not Recovered/Not Resolved]
  - Mood altered [Recovering/Resolving]
  - Vision blurred [Recovering/Resolving]
  - Nervousness [Recovering/Resolving]
  - Alopecia [Recovering/Resolving]
  - Drug dependence [Unknown]
  - Anger [Not Recovered/Not Resolved]
  - Anxiety [Recovering/Resolving]
  - Asthenia [Recovering/Resolving]
  - Dizziness [Unknown]
  - Product use in unapproved indication [Unknown]

NARRATIVE: CASE EVENT DATE: 201107
